FAERS Safety Report 6694897-2 (Version None)
Quarter: 2010Q2

REPORT INFORMATION
  Report Type: 
  Country: None (occurrence: None)
  Receive Date: 20100420
  Receipt Date: 20100406
  Transmission Date: 20101027
  Serious: Yes (Hospitalization)
  Sender: FDA-Public Use
  Company Number: 2010AL001811

PATIENT
  Age: 50 Year
  Sex: Male

DRUGS (4)
  1. LORAZEPAM [Suspect]
     Dosage: 4 MG;QD
  2. ABILIFY [Concomitant]
  3. VALPROIC ACID [Concomitant]
  4. ZOPICLONE [Concomitant]

REACTIONS (2)
  - MALAISE [None]
  - SOMNOLENCE [None]
